FAERS Safety Report 5795325-1 (Version None)
Quarter: 2008Q2

REPORT INFORMATION
  Report Type: 
  Country: None (occurrence: None)
  Receive Date: 20080630
  Receipt Date: 20080619
  Transmission Date: 20081010
  Serious: Yes (Other)
  Sender: FDA-Public Use
  Company Number: FR-JNJFOC-20080605450

PATIENT
  Sex: Male

DRUGS (1)
  1. REMICADE [Suspect]
     Indication: DRUG USE FOR UNKNOWN INDICATION
     Dosage: TREATED FOR ONE YEAR WITH ^SPECTACULAR^ EFFECTS.

REACTIONS (2)
  - INFLAMMATION [None]
  - LEUKOCYTOSIS [None]
